FAERS Safety Report 8934239 (Version 1)
Quarter: 2012Q4

REPORT INFORMATION
  Report Type: 
  Country: ES (occurrence: ES)
  Receive Date: 20121129
  Receipt Date: 20121129
  Transmission Date: 20130627
  Serious: Yes (Death, Other)
  Sender: FDA-Public Use
  Company Number: PHHY2012ES109354

PATIENT
  Age: 33 Year
  Sex: Female

DRUGS (4)
  1. CICLOSPORIN [Suspect]
     Indication: PROPHYLAXIS AGAINST GRAFT VERSUS HOST DISEASE
  2. MYCOPHENOLATE MOFETIL [Suspect]
     Indication: PROPHYLAXIS AGAINST GRAFT VERSUS HOST DISEASE
  3. BLOOD AND RELATED PRODUCTS [Concomitant]
  4. CIDOFOVIR [Concomitant]
     Indication: BK VIRUS INFECTION

REACTIONS (5)
  - Encephalitis cytomegalovirus [Fatal]
  - Cytomegalovirus chorioretinitis [Fatal]
  - Pyrexia [Fatal]
  - Cystitis viral [Unknown]
  - Acute graft versus host disease [Unknown]
